FAERS Safety Report 21307420 (Version 3)
Quarter: 2022Q4

REPORT INFORMATION
  Report Type: Spontaneous
  Country: US (occurrence: US)
  Receive Date: 20220908
  Receipt Date: 20221006
  Transmission Date: 20230113
  Serious: No
  Sender: FDA-Public Use
  Company Number: US-PFIZER INC-PV202200046224

PATIENT
  Age: 69 Year
  Sex: Female

DRUGS (1)
  1. SOMATROPIN [Suspect]
     Active Substance: SOMATROPIN
     Indication: Hypopituitarism
     Dosage: TAKE 0.2MG EVERY OTHER DAY AT BEDTIME. TAKES 0.1MG EVERY DAY
     Route: 058
     Dates: start: 202103

REACTIONS (4)
  - Device breakage [Unknown]
  - Device leakage [Unknown]
  - Drug dose omission by device [Unknown]
  - Off label use of device [Unknown]
